FAERS Safety Report 9220969 (Version 1)
Quarter: 2013Q2

REPORT INFORMATION
  Report Type: Spontaneous
  Country: US (occurrence: US)
  Receive Date: 20130409
  Receipt Date: 20130409
  Transmission Date: 20140414
  Serious: Yes (Hospitalization)
  Sender: FDA-Public Use
  Company Number: PHHY2013US033113

PATIENT
  Age: 71 Year
  Sex: Male

DRUGS (4)
  1. AZATHIOPRINE [Suspect]
     Indication: TRANSPLANT REJECTION
  2. TACROLIMUS [Suspect]
     Indication: TRANSPLANT REJECTION
  3. PREDNISONE [Suspect]
     Indication: TRANSPLANT REJECTION
  4. ASPIRIN [Concomitant]
     Indication: HEART TRANSPLANT

REACTIONS (5)
  - Post transplant lymphoproliferative disorder [Unknown]
  - Sinusitis fungal [Unknown]
  - Headache [Unknown]
  - Hypoaesthesia [Unknown]
  - Cranial nerve disorder [Unknown]
